FAERS Safety Report 16461679 (Version 51)
Quarter: 2022Q4

REPORT INFORMATION
  Report Type: Spontaneous
  Country: CA (occurrence: CA)
  Receive Date: 20190621
  Receipt Date: 20221008
  Transmission Date: 20230113
  Serious: Yes (Hospitalization, Other)
  Sender: FDA-Public Use
  Company Number: CA-CELLTRION INC.-2019CA020018

PATIENT

DRUGS (72)
  1. INFLECTRA [Suspect]
     Active Substance: INFLIXIMAB-DYYB
     Indication: Crohn^s disease
     Dosage: 225 MG  0, 2, 6, THEN EVERY 8 WEEKS /0 WEEK DOSE
     Route: 042
     Dates: start: 20190308, end: 20190308
  2. INFLECTRA [Suspect]
     Active Substance: INFLIXIMAB-DYYB
     Dosage: 225 MG Q0 WEEK DOSE
     Route: 042
     Dates: start: 20190308, end: 20190308
  3. INFLECTRA [Suspect]
     Active Substance: INFLIXIMAB-DYYB
     Dosage: 5 MG/KG, 0, 2, 6, THEN EVERY 8 WEEKS/Q2 WEEK DOSE
     Route: 042
     Dates: start: 20190322, end: 20190322
  4. INFLECTRA [Suspect]
     Active Substance: INFLIXIMAB-DYYB
     Dosage: 5 MG/KG, 0, 2, 6, THEN EVERY 8 WEEKS /Q6 WEEK DOSE
     Route: 042
     Dates: start: 20190418, end: 20190418
  5. INFLECTRA [Suspect]
     Active Substance: INFLIXIMAB-DYYB
     Dosage: 5 MG/KG, 0, 2, 6, THEN EVERY 8 WEEKS
     Route: 042
     Dates: start: 20190614, end: 20190614
  6. INFLECTRA [Suspect]
     Active Substance: INFLIXIMAB-DYYB
     Dosage: 5 MG/KG,EVERY 8 WEEKS
     Route: 042
     Dates: start: 20190614, end: 20190614
  7. INFLECTRA [Suspect]
     Active Substance: INFLIXIMAB-DYYB
     Dosage: 5 MG/KG, EVERY 4 WEEKS
     Route: 042
     Dates: start: 20190809, end: 20200629
  8. INFLECTRA [Suspect]
     Active Substance: INFLIXIMAB-DYYB
     Dosage: 5 MG/KG, EVERY 4 WEEKS
     Route: 042
     Dates: start: 20190909
  9. INFLECTRA [Suspect]
     Active Substance: INFLIXIMAB-DYYB
     Dosage: 5 MG/KG, EVERY 4 WEEKS
     Route: 042
     Dates: start: 20191004
  10. INFLECTRA [Suspect]
     Active Substance: INFLIXIMAB-DYYB
     Dosage: 5 MG/KG, EVERY 4 WEEKS
     Route: 042
     Dates: start: 20191101
  11. INFLECTRA [Suspect]
     Active Substance: INFLIXIMAB-DYYB
     Dosage: 5 MG/KG, EVERY 4 WEEKS
     Route: 042
     Dates: start: 20191128
  12. INFLECTRA [Suspect]
     Active Substance: INFLIXIMAB-DYYB
     Dosage: 5 MG/KG, EVERY 4 WEEKS
     Route: 042
     Dates: start: 20191230
  13. INFLECTRA [Suspect]
     Active Substance: INFLIXIMAB-DYYB
     Dosage: 5 MG/KG, EVERY 4 WEEKS
     Route: 042
     Dates: start: 20200131
  14. INFLECTRA [Suspect]
     Active Substance: INFLIXIMAB-DYYB
     Dosage: 5 MG/KG, EVERY 4 WEEKS
     Route: 042
     Dates: start: 20200301
  15. INFLECTRA [Suspect]
     Active Substance: INFLIXIMAB-DYYB
     Dosage: 5 MG/KG, EVERY 4 WEEKS
     Route: 042
     Dates: start: 20200325
  16. INFLECTRA [Suspect]
     Active Substance: INFLIXIMAB-DYYB
     Dosage: 5 MG/KG, EVERY 4 WEEKS
     Route: 042
     Dates: start: 20200424
  17. INFLECTRA [Suspect]
     Active Substance: INFLIXIMAB-DYYB
     Dosage: 5 MG/KG, EVERY 4 WEEKS
     Route: 042
     Dates: start: 20200522
  18. INFLECTRA [Suspect]
     Active Substance: INFLIXIMAB-DYYB
     Dosage: 5 MG/KG, EVERY 4 WEEKS
     Route: 042
     Dates: start: 20200629
  19. INFLECTRA [Suspect]
     Active Substance: INFLIXIMAB-DYYB
     Dosage: 260 MG (5MG/KG), EVERY 4 WEEKS
     Route: 042
     Dates: start: 20200727
  20. INFLECTRA [Suspect]
     Active Substance: INFLIXIMAB-DYYB
     Dosage: 260 MG, EVERY 4 WEEKS
     Route: 042
     Dates: start: 20200921
  21. INFLECTRA [Suspect]
     Active Substance: INFLIXIMAB-DYYB
     Dosage: 260 MG, EVERY 4 WEEKS
     Route: 042
     Dates: start: 20201019
  22. INFLECTRA [Suspect]
     Active Substance: INFLIXIMAB-DYYB
     Dosage: 260 MG, EVERY 4 WEEKS
     Route: 042
     Dates: start: 20201120
  23. INFLECTRA [Suspect]
     Active Substance: INFLIXIMAB-DYYB
     Dosage: 260 MG, EVERY 4 WEEKS
     Route: 042
     Dates: start: 20201214
  24. INFLECTRA [Suspect]
     Active Substance: INFLIXIMAB-DYYB
     Dosage: 260 MG, EVERY 4 WEEKS
     Route: 042
     Dates: start: 20210115
  25. INFLECTRA [Suspect]
     Active Substance: INFLIXIMAB-DYYB
     Dosage: 260 MG, EVERY 4 WEEKS
     Route: 042
     Dates: start: 20210212
  26. INFLECTRA [Suspect]
     Active Substance: INFLIXIMAB-DYYB
     Dosage: 260 MG, EVERY 4 WEEKS
     Route: 042
     Dates: start: 20210312
  27. INFLECTRA [Suspect]
     Active Substance: INFLIXIMAB-DYYB
     Dosage: 260 MG, EVERY 4 WEEKS
     Route: 042
     Dates: start: 20210409
  28. INFLECTRA [Suspect]
     Active Substance: INFLIXIMAB-DYYB
     Dosage: 260 MG, EVERY 4 WEEKS
     Route: 042
     Dates: start: 20210507
  29. INFLECTRA [Suspect]
     Active Substance: INFLIXIMAB-DYYB
     Dosage: 260 MG, EVERY 4 WEEKS
     Route: 042
     Dates: start: 20210604
  30. INFLECTRA [Suspect]
     Active Substance: INFLIXIMAB-DYYB
     Dosage: 260 MG, EVERY 4 WEEKS
     Route: 042
     Dates: start: 20210705
  31. INFLECTRA [Suspect]
     Active Substance: INFLIXIMAB-DYYB
     Dosage: 260 MG, EVERY 4 WEEKS
     Route: 042
     Dates: start: 20210730
  32. INFLECTRA [Suspect]
     Active Substance: INFLIXIMAB-DYYB
     Dosage: 260 MG, EVERY 4 WEEKS
     Route: 042
     Dates: start: 20210827
  33. INFLECTRA [Suspect]
     Active Substance: INFLIXIMAB-DYYB
     Dosage: 260 MG EVERY 4 WEEKS
     Route: 042
     Dates: start: 20210924
  34. INFLECTRA [Suspect]
     Active Substance: INFLIXIMAB-DYYB
     Dosage: 260 MG EVERY 4 WEEKS
     Route: 042
     Dates: start: 20211022
  35. INFLECTRA [Suspect]
     Active Substance: INFLIXIMAB-DYYB
     Dosage: 260 MG EVERY 4 WEEKS
     Route: 042
     Dates: start: 20211119
  36. INFLECTRA [Suspect]
     Active Substance: INFLIXIMAB-DYYB
     Dosage: 260 MG EVERY 4 WEEKS
     Route: 042
     Dates: start: 20211217
  37. INFLECTRA [Suspect]
     Active Substance: INFLIXIMAB-DYYB
     Dosage: 260 MG EVERY 4 WEEKS
     Route: 042
     Dates: start: 20220114
  38. INFLECTRA [Suspect]
     Active Substance: INFLIXIMAB-DYYB
     Dosage: 260 MG EVERY 4 WEEKS
     Route: 042
     Dates: start: 20220211
  39. INFLECTRA [Suspect]
     Active Substance: INFLIXIMAB-DYYB
     Dosage: 260 MG EVERY 4 WEEKS
     Route: 042
     Dates: start: 20220311
  40. INFLECTRA [Suspect]
     Active Substance: INFLIXIMAB-DYYB
     Dosage: 260 MG EVERY 4 WEEKS
     Route: 042
     Dates: start: 20220408
  41. INFLECTRA [Suspect]
     Active Substance: INFLIXIMAB-DYYB
     Dosage: 260 MG EVERY 4 WEEKS
     Route: 042
     Dates: start: 20220511
  42. INFLECTRA [Suspect]
     Active Substance: INFLIXIMAB-DYYB
     Dosage: 260 MG EVERY 4 WEEKS
     Route: 042
     Dates: start: 20220511
  43. INFLECTRA [Suspect]
     Active Substance: INFLIXIMAB-DYYB
     Dosage: 260 MG EVERY 4 WEEKS
     Route: 042
     Dates: start: 20220603
  44. INFLECTRA [Suspect]
     Active Substance: INFLIXIMAB-DYYB
     Dosage: 260 MG EVERY 4 WEEKS
     Route: 042
     Dates: start: 20220923
  45. CYMBALTA [Concomitant]
     Active Substance: DULOXETINE HYDROCHLORIDE
     Dosage: 30 MG, DAILY FOR 2 WEEKS
     Route: 048
  46. CYMBALTA [Concomitant]
     Active Substance: DULOXETINE HYDROCHLORIDE
     Dosage: 60 MG, DAILY(TWO TABLETS 30MG
     Route: 048
  47. CYMBALTA [Concomitant]
     Active Substance: DULOXETINE HYDROCHLORIDE
     Dosage: 30 MG, 1X/DAY [FOR 2 WEEKS THEN TAKE 2 TABLETS QD]
     Route: 048
  48. DIPHENHYDRAMINE [Concomitant]
     Active Substance: DIPHENHYDRAMINE
     Indication: Premedication
     Dosage: 50 MG
     Dates: start: 20200727, end: 20200727
  49. DIPHENHYDRAMINE [Concomitant]
     Active Substance: DIPHENHYDRAMINE
     Dosage: 50 MG
     Route: 048
     Dates: start: 20201019, end: 20201019
  50. DIPHENHYDRAMINE [Concomitant]
     Active Substance: DIPHENHYDRAMINE
     Dosage: 50 MG
     Dates: start: 20201120, end: 20201120
  51. DIPHENHYDRAMINE [Concomitant]
     Active Substance: DIPHENHYDRAMINE
     Dosage: 50 MG
     Route: 048
     Dates: start: 20210212, end: 20210212
  52. DIPHENHYDRAMINE [Concomitant]
     Active Substance: DIPHENHYDRAMINE
     Dosage: 50 MG
     Dates: start: 20210409, end: 20210409
  53. FLAGYL [Concomitant]
     Active Substance: METRONIDAZOLE\METRONIDAZOLE HYDROCHLORIDE
     Dosage: 1 DF, 2X/DAY,DOSAGE INFORMATION NOT AVAILABLE FOR 3 WEEKS
     Route: 048
     Dates: start: 201910
  54. FLAGYL [Concomitant]
     Active Substance: METRONIDAZOLE\METRONIDAZOLE HYDROCHLORIDE
     Dosage: 1 DF, ALTERNATE DAY (EVERY 2 DAYS) (DOSAGE INFORMATION NOT AVAILABLE, FOR 3 WEEKS)
     Route: 048
     Dates: start: 201910
  55. FLOVENT [Concomitant]
     Active Substance: FLUTICASONE PROPIONATE
     Dosage: 1 DF, AS NEEDED
     Route: 055
  56. FLOVENT [Concomitant]
     Active Substance: FLUTICASONE PROPIONATE
     Dosage: 1 DF, AS NEEDED, INHALATION
     Route: 055
  57. FLOVENT [Concomitant]
     Active Substance: FLUTICASONE PROPIONATE
     Dosage: 1 DF, AS NEEDED, INHALATION
     Route: 050
  58. FOLIC ACID DC [Concomitant]
     Dosage: UNK
  59. HYDROCORTISONE [Concomitant]
     Active Substance: HYDROCORTISONE
     Indication: Premedication
     Dosage: 100 MG
     Dates: start: 20200727, end: 20200727
  60. HYDROCORTISONE [Concomitant]
     Active Substance: HYDROCORTISONE
     Dosage: 100 MG
     Route: 042
     Dates: start: 20201019, end: 20201019
  61. HYDROCORTISONE [Concomitant]
     Active Substance: HYDROCORTISONE
     Dosage: 100 MG
     Dates: start: 20201120, end: 20201120
  62. HYDROCORTISONE [Concomitant]
     Active Substance: HYDROCORTISONE
     Dosage: 100 MG
     Route: 042
     Dates: start: 20210212, end: 20210212
  63. HYDROCORTISONE [Concomitant]
     Active Substance: HYDROCORTISONE
     Dosage: 100 MG
     Route: 042
     Dates: start: 20210409, end: 20210409
  64. METHOTREXATE [Concomitant]
     Active Substance: METHOTREXATE
     Dosage: 1 DF, UNK
  65. MESALAMINE [Concomitant]
     Active Substance: MESALAMINE
     Dosage: UNK
  66. PREDNISONE [Concomitant]
     Active Substance: PREDNISONE
     Dosage: 400 MG, FOR ONE WEEK (THEN TAPER 5 MG UNTIL FINISHED)
     Dates: start: 201901
  67. ALBUTEROL [Concomitant]
     Active Substance: ALBUTEROL
     Dosage: 1 DF, AS NEEDED
     Route: 055
  68. ALBUTEROL [Concomitant]
     Active Substance: ALBUTEROL
     Dosage: 1 DF, AS NEEDED, INHALATION
     Route: 055
  69. ALBUTEROL [Concomitant]
     Active Substance: ALBUTEROL
     Dosage: 1 DF, AS NEEDED, INHALATION
     Route: 050
  70. SIMVASTATIN [Concomitant]
     Active Substance: SIMVASTATIN
     Indication: Pain
     Dosage: 1 DF, DOSAGE INFORMATION NOT AVAILABLE, PRN
     Route: 048
     Dates: start: 201910
  71. TRAMADOL [Concomitant]
     Active Substance: TRAMADOL
     Indication: Pain
     Dosage: 50 MG, EVERY 4 HRS, 1 TO 2 TABLETS
     Route: 048
     Dates: start: 201907
  72. VITAMIN D NOS [Concomitant]
     Active Substance: VITAMIN D NOS
     Dosage: UNK

REACTIONS (47)
  - Loss of consciousness [Unknown]
  - Anal abscess [Recovered/Resolved]
  - Tooth infection [Unknown]
  - Immunodeficiency [Not Recovered/Not Resolved]
  - Pneumonia [Unknown]
  - Haemolysis [Unknown]
  - Off label use [Unknown]
  - Off label use [Unknown]
  - Intentional product use issue [Unknown]
  - Incorrect dose administered [Unknown]
  - Drug level below therapeutic [Unknown]
  - Headache [Recovered/Resolved]
  - Condition aggravated [Recovering/Resolving]
  - Feeling cold [Recovered/Resolved]
  - Chills [Unknown]
  - Tremor [Unknown]
  - Arthralgia [Unknown]
  - Decreased appetite [Unknown]
  - Dehydration [Unknown]
  - Cardiovascular disorder [Unknown]
  - Fear of injection [Unknown]
  - Pyrexia [Unknown]
  - Malaise [Unknown]
  - Heart rate increased [Unknown]
  - Fistula [Recovered/Resolved]
  - Pain [Not Recovered/Not Resolved]
  - Blood pressure diastolic decreased [Unknown]
  - Mouth ulceration [Unknown]
  - Stomatitis [Unknown]
  - Asthenia [Not Recovered/Not Resolved]
  - Fatigue [Not Recovered/Not Resolved]
  - Neutrophil count decreased [Not Recovered/Not Resolved]
  - Red blood cell count decreased [Not Recovered/Not Resolved]
  - Vitamin D decreased [Not Recovered/Not Resolved]
  - Sinusitis [Unknown]
  - Productive cough [Not Recovered/Not Resolved]
  - Bacterial infection [Not Recovered/Not Resolved]
  - Ear discomfort [Unknown]
  - Sputum discoloured [Not Recovered/Not Resolved]
  - Gastrooesophageal reflux disease [Unknown]
  - Cough [Not Recovered/Not Resolved]
  - Chest discomfort [Not Recovered/Not Resolved]
  - Dyspnoea [Not Recovered/Not Resolved]
  - Dyspnoea [Unknown]
  - Sensory loss [Unknown]
  - COVID-19 [Not Recovered/Not Resolved]
  - Feeling abnormal [Unknown]

NARRATIVE: CASE EVENT DATE: 20190101
